FAERS Safety Report 5782244-X (Version None)
Quarter: 2008Q2

REPORT INFORMATION
  Report Type: 
  Country: None (occurrence: None)
  Receive Date: 20080618
  Receipt Date: 20080604
  Transmission Date: 20081010
  Serious: Yes (Hospitalization)
  Sender: FDA-Public Use
  Company Number: DSJ-2008-05972

PATIENT
  Age: 70 Year
  Sex: Female
  Weight: 56.3 kg

DRUGS (5)
  1. OLMESARTAN MEDOXOMIL [Suspect]
     Indication: HYPERTENSION
     Dosage: 10 MG, PER ORAL
     Route: 048
     Dates: start: 20080324, end: 20080513
  2. BUFFERIN (ACETYLSALICYLIC ACID, ALUMINIUM GLYCINATE) (ACETYLSALICYLIC [Concomitant]
  3. LANDEL (EFONIDIPINE HYDROCHLORIDE) (EFONIDIPINE HYDROCHLORIDE) [Concomitant]
  4. MARZULENE S (LEVOGLUTAMIDE, SODIUM GUALENATE) (LEVOGLUTAMIDE, SODIUM G [Concomitant]
  5. GASMOTIN (MOSAPRIDE CITRATE) (MOSAPRIDE CITRATE) [Concomitant]

REACTIONS (6)
  - ALANINE AMINOTRANSFERASE INCREASED [None]
  - ASPARTATE AMINOTRANSFERASE INCREASED [None]
  - BLOOD ALKALINE PHOSPHATASE INCREASED [None]
  - BLOOD BILIRUBIN INCREASED [None]
  - GAMMA-GLUTAMYLTRANSFERASE INCREASED [None]
  - HEPATIC FUNCTION ABNORMAL [None]
